FAERS Safety Report 5322025-4 (Version None)
Quarter: 2007Q2

REPORT INFORMATION
  Report Type: 
  Country: None (occurrence: None)
  Receive Date: 20070508
  Receipt Date: 20070508
  Transmission Date: 20071010
  Serious: No
  Sender: FDA-Public Use
  Company Number: None

PATIENT
  Age: 23 Year
  Sex: Male
  Weight: 63.5036 kg

DRUGS (1)
  1. ZOLOFT [Suspect]
     Indication: ANXIETY
     Dosage: 1 TABLET -50 MG-  QD  PO
     Route: 048
     Dates: start: 20030201, end: 20030401

REACTIONS (7)
  - ANHEDONIA [None]
  - BLUNTED AFFECT [None]
  - DISTURBANCE IN ATTENTION [None]
  - DISTURBANCE IN SEXUAL AROUSAL [None]
  - LIBIDO DECREASED [None]
  - MENTAL IMPAIRMENT [None]
  - SEXUAL DYSFUNCTION [None]
